FAERS Safety Report 5266328-0 (Version None)
Quarter: 2007Q1

REPORT INFORMATION
  Report Type: 
  Country: None (occurrence: None)
  Receive Date: 20070315
  Receipt Date: 20070308
  Transmission Date: 20070707
  Serious: Yes (Death)
  Sender: FDA-Public Use
  Company Number: FR-BAXTER-2006BH014610

PATIENT
  Age: 58 Year
  Sex: Male
  Weight: 47 kg

DRUGS (16)
  1. GAMMAGARD S/D [Suspect]
     Indication: DRUG USE FOR UNKNOWN INDICATION
     Route: 042
     Dates: start: 20030303, end: 20030305
  2. SPASFON [Concomitant]
     Indication: PAIN
     Dates: start: 20030215
  3. ACUPAN [Concomitant]
     Indication: PAIN
     Dates: start: 20030215
  4. KABIVEN [Concomitant]
     Dosage: DOSE UNIT:OTHER
     Dates: start: 20030215
  5. LEDERFOLIN [Concomitant]
     Dates: start: 20030215
  6. MOPRAL [Concomitant]
     Dates: start: 20030215
  7. CALCIPARINE [Concomitant]
     Dates: start: 20030215
  8. LOXEN [Concomitant]
     Indication: HYPERTENSION
     Dates: start: 20030215
  9. RIMIFON [Concomitant]
     Dates: start: 20030215
  10. RIFADIN [Concomitant]
     Dates: start: 20030215
  11. ETHAMBUTOL HYDROCHLORIDE [Concomitant]
     Dates: start: 20030215
  12. PIRILENE [Concomitant]
     Dates: start: 20030215
  13. OXYGEN [Concomitant]
     Dates: start: 20030215
  14. PRIMPERAN INJ [Concomitant]
     Dates: start: 20030224
  15. GLUCOSE [Concomitant]
     Dates: start: 20030306
  16. HYPNOVEL [Concomitant]
     Dates: start: 20030306

REACTIONS (8)
  - ACUTE ABDOMEN [None]
  - CARDIAC ARREST [None]
  - CARDIAC FAILURE [None]
  - CONDITION AGGRAVATED [None]
  - LUNG DISORDER [None]
  - MULTI-ORGAN FAILURE [None]
  - PLEURAL DISORDER [None]
  - PYREXIA [None]
